FAERS Safety Report 17159486 (Version 1)
Quarter: 2019Q4

REPORT INFORMATION
  Report Type: Spontaneous
  Country: CN (occurrence: CN)
  Receive Date: 20191216
  Receipt Date: 20191216
  Transmission Date: 20200122
  Serious: Yes (Other)
  Sender: FDA-Public Use
  Company Number: CN-GLAXOSMITHKLINE-CN2019APC227209

PATIENT

DRUGS (8)
  1. PULMICORT RESPULES [Concomitant]
     Active Substance: BUDESONIDE
     Indication: DIZZINESS
     Dosage: 1 MG, QD
     Route: 055
     Dates: start: 20191209, end: 20191209
  2. DIPHENHYDRAMINE HYDROCHLORIDE INJECTION [Concomitant]
     Indication: DYSPNOEA
  3. VENTOLIN [Suspect]
     Active Substance: ALBUTEROL SULFATE
     Indication: DIZZINESS
     Dosage: 2.5 ML, QD
     Route: 055
     Dates: start: 20191209, end: 20191209
  4. SODIUM CHLORIDE INJECTION [Concomitant]
     Active Substance: SODIUM CHLORIDE
     Indication: DYSPNOEA
  5. SODIUM CHLORIDE INJECTION [Concomitant]
     Active Substance: SODIUM CHLORIDE
     Indication: DIZZINESS
     Dosage: 10 ML, QD
     Route: 055
     Dates: start: 20191209, end: 20191209
  6. DIPHENHYDRAMINE HYDROCHLORIDE INJECTION [Concomitant]
     Indication: DIZZINESS
     Dosage: 20 MG, QD
     Route: 030
     Dates: start: 20191209, end: 20191209
  7. VENTOLIN [Suspect]
     Active Substance: ALBUTEROL SULFATE
     Indication: DYSPNOEA
  8. PULMICORT RESPULES [Concomitant]
     Active Substance: BUDESONIDE
     Indication: DYSPNOEA

REACTIONS (6)
  - Heart rate increased [Recovering/Resolving]
  - Dyspnoea [Recovering/Resolving]
  - Blood pressure increased [Recovering/Resolving]
  - Condition aggravated [Unknown]
  - Rales [Unknown]
  - Palpitations [Recovering/Resolving]

NARRATIVE: CASE EVENT DATE: 20191209
